FAERS Safety Report 7504822-X (Version None)
Quarter: 2011Q2

REPORT INFORMATION
  Report Type: 
  Country: None (occurrence: None)
  Receive Date: 20110525
  Receipt Date: 20110404
  Transmission Date: 20111010
  Serious: Yes (Hospitalization)
  Sender: FDA-Public Use
  Company Number: US-AMGEN-USASP2011014941

PATIENT
  Age: 87 Year
  Sex: Male

DRUGS (1)
  1. ARANESP [Suspect]
     Indication: RENAL FAILURE CHRONIC
     Dosage: 100 A?G, UNK
     Dates: start: 20100101

REACTIONS (1)
  - CEREBROVASCULAR ACCIDENT [None]
